FAERS Safety Report 4898264-3 (Version None)
Quarter: 2006Q1

REPORT INFORMATION
  Report Type: 
  Country: None (occurrence: None)
  Receive Date: 20060201
  Receipt Date: 20060123
  Transmission Date: 20060701
  Serious: Yes (Death, Hospitalization, Other)
  Sender: FDA-Public Use
  Company Number: US-MERCK-0601USA02776

PATIENT
  Age: 72 Year
  Sex: Female
  Weight: 55 kg

DRUGS (5)
  1. VIOXX [Suspect]
     Indication: ARTHRITIS
     Route: 048
     Dates: start: 20030101, end: 20041001
  2. SINGULAIR [Concomitant]
     Route: 048
  3. LIPITOR [Concomitant]
     Route: 065
  4. PLAVIX [Concomitant]
     Route: 065
  5. FOSAMAX [Concomitant]
     Route: 048

REACTIONS (3)
  - CEREBROVASCULAR DISORDER [None]
  - GASTROINTESTINAL INFECTION [None]
  - MYOCARDIAL INFARCTION [None]
